FAERS Safety Report 8579367-9 (Version None)
Quarter: 2012Q3

REPORT INFORMATION
  Report Type: 
  Country: None (occurrence: None)
  Receive Date: 20120808
  Receipt Date: 20100927
  Transmission Date: 20120928
  Serious: Yes (Death)
  Sender: FDA-Public Use
  Company Number: US-ROCHE-1097897

PATIENT
  Sex: Female

DRUGS (2)
  1. ACTIVASE [Suspect]
  2. ACTIVASE [Suspect]
     Indication: CIRRHOSIS ALCOHOLIC

REACTIONS (1)
  - DEATH [None]
